FAERS Safety Report 10594370 (Version 3)
Quarter: 2015Q1

REPORT INFORMATION
  Report Type: Report from Study
  Country: JP (occurrence: JP)
  Receive Date: 20141119
  Receipt Date: 20150128
  Transmission Date: 20150720
  Serious: Yes (Hospitalization, Other)
  Sender: FDA-Public Use
  Company Number: JP-B.I. PHARMACEUTICALS,INC./RIDGEFIELD-2014-BI-46652NB

PATIENT
  Age: 66 Year
  Sex: Male
  Weight: 44.6 kg

DRUGS (5)
  1. GILOTRIF [Suspect]
     Active Substance: AFATINIB
     Indication: ADENOCARCINOMA
     Dosage: 40 MG
     Route: 048
     Dates: start: 20140916, end: 20141016
  2. MINOMYCIN [Concomitant]
     Active Substance: MINOCYCLINE HYDROCHLORIDE
     Indication: PROPHYLAXIS
     Dosage: 2 ANZ
     Route: 048
     Dates: start: 20140913
  3. TARCEVA [Suspect]
     Active Substance: ERLOTINIB HYDROCHLORIDE
     Route: 065
     Dates: start: 20141017
  4. TSUMURA HANGESHASHINTO [Concomitant]
     Indication: PROPHYLAXIS AGAINST DIARRHOEA
     Dosage: DAILY DOSE: 3 TIMES/1/DAY
     Route: 065
     Dates: start: 20140913
  5. TARCEVA [Suspect]
     Active Substance: ERLOTINIB HYDROCHLORIDE
     Indication: PRODUCT USED FOR UNKNOWN INDICATION
     Route: 065
     Dates: start: 20130930, end: 20140220

REACTIONS (8)
  - Diarrhoea [Unknown]
  - Diarrhoea [Recovered/Resolved]
  - Dehydration [Unknown]
  - Rash [Not Recovered/Not Resolved]
  - Malignant neoplasm progression [Unknown]
  - Nail disorder [Not Recovered/Not Resolved]
  - Memory impairment [Unknown]
  - Meningitis [Unknown]

NARRATIVE: CASE EVENT DATE: 20140918
